FAERS Safety Report 5320208-0 (Version None)
Quarter: 2007Q2

REPORT INFORMATION
  Report Type: 
  Country: None (occurrence: None)
  Receive Date: 20070509
  Receipt Date: 20070507
  Transmission Date: 20071010
  Serious: Yes (Hospitalization)
  Sender: FDA-Public Use
  Company Number: A0650267A

PATIENT
  Age: 34 Year
  Sex: Female

DRUGS (12)
  1. TYKERB [Suspect]
     Indication: BREAST CANCER
     Dosage: 1250MG PER DAY
     Route: 048
     Dates: start: 20070419
  2. DILAUDID [Concomitant]
  3. DECADRON [Concomitant]
  4. DETROL [Concomitant]
  5. METHADONE HCL [Concomitant]
  6. DEPAKOTE [Concomitant]
  7. DITROPAN [Concomitant]
  8. NEURONTIN [Concomitant]
  9. AMBIEN [Concomitant]
  10. LIDODERM PATCH [Concomitant]
  11. VIT C [Concomitant]
  12. ANTIBIOTICS [Concomitant]

REACTIONS (10)
  - ASTHENIA [None]
  - CATHETER RELATED INFECTION [None]
  - DIARRHOEA [None]
  - DYSPHAGIA [None]
  - DYSPNOEA [None]
  - HALLUCINATION [None]
  - LIP DISCOLOURATION [None]
  - ORAL FUNGAL INFECTION [None]
  - POSTOPERATIVE WOUND INFECTION [None]
  - TONGUE DISCOLOURATION [None]
